FAERS Safety Report 5394929-8 (Version None)
Quarter: 2007Q3

REPORT INFORMATION
  Report Type: 
  Country: None (occurrence: None)
  Receive Date: 20070720
  Receipt Date: 20070711
  Transmission Date: 20080115
  Serious: Yes (Other)
  Sender: FDA-Public Use
  Company Number: B0479400A

PATIENT
  Age: 75 Year
  Sex: Female

DRUGS (10)
  1. LITHIUM SALT (FORMULATION UNKNOWN) (LITHIUM SALT) (GENERIC) [Suspect]
     Dosage: 350 MG / THREE TIMES PER DAY/
  2. NIMESULIDE (FORMULATION UNKNOWN) (NIMESULIDE) [Suspect]
     Indication: PAIN
  3. VENLAFAXIINE HCL [Concomitant]
  4. TRAZODONE HCL [Concomitant]
  5. DULOXETINE [Concomitant]
  6. BISOPROLOL FUMARATE [Concomitant]
  7. SIMVASTATIN [Concomitant]
  8. METFORMIN HYDROCHLORIDE [Concomitant]
  9. ALPRAZOLAM [Concomitant]
  10. ZOPICLONE [Concomitant]

REACTIONS (7)
  - APHASIA [None]
  - CONFUSIONAL STATE [None]
  - DRUG TOXICITY [None]
  - MUSCLE RIGIDITY [None]
  - MUSCULAR WEAKNESS [None]
  - NERVOUS SYSTEM DISORDER [None]
  - TREMOR [None]
